FAERS Safety Report 8163730-4 (Version None)
Quarter: 2012Q1

REPORT INFORMATION
  Report Type: 
  Country: None (occurrence: None)
  Receive Date: 20120221
  Receipt Date: 20120204
  Transmission Date: 20120608
  Serious: Yes (Hospitalization)
  Sender: FDA-Public Use
  Company Number: 2012AP000317

PATIENT
  Age: 3 Year
  Sex: Male

DRUGS (1)
  1. RISPERIDONE [Suspect]
     Indication: PRODUCT USED FOR UNKNOWN INDICATION

REACTIONS (10)
  - INCOHERENT [None]
  - DROOLING [None]
  - MUSCLE SPASMS [None]
  - UNRESPONSIVE TO STIMULI [None]
  - CRYING [None]
  - EXTRAPYRAMIDAL DISORDER [None]
  - HEAD TITUBATION [None]
  - SOMNOLENCE [None]
  - ACCIDENTAL OVERDOSE [None]
  - ABASIA [None]
